FAERS Safety Report 8964849 (Version 1)
Quarter: 2012Q4

REPORT INFORMATION
  Report Type: 
  Country: FR (occurrence: FR)
  Receive Date: 20121213
  Receipt Date: 20121213
  Transmission Date: 20130627
  Serious: Yes (Hospitalization)
  Sender: FDA-Public Use
  Company Number: FR-ASTRAZENECA-2012SE91630

PATIENT
  Age: 19349 Day
  Sex: Male
  Weight: 94 kg

DRUGS (27)
  1. INEXIUM [Suspect]
     Route: 048
     Dates: end: 20121024
  2. TIENAM [Suspect]
     Route: 048
     Dates: start: 20121006, end: 20121023
  3. MABTHERA [Concomitant]
     Route: 042
     Dates: start: 20120911, end: 20120911
  4. MABTHERA [Concomitant]
     Route: 042
     Dates: start: 20120918, end: 20120918
  5. VINCRISTINE [Concomitant]
     Route: 042
     Dates: start: 20120924, end: 20120927
  6. DOXORUBICINE [Concomitant]
     Route: 042
     Dates: start: 20120924, end: 20120927
  7. DEXAMETHASONE [Concomitant]
  8. LANTUS [Concomitant]
  9. ACTAPRID [Concomitant]
  10. PRIMPERAN [Concomitant]
  11. ACUPAN [Concomitant]
  12. SPASFON [Concomitant]
  13. SOMATULINE [Concomitant]
  14. LOVENOX [Concomitant]
  15. FUNGIZONE [Concomitant]
  16. LYRICA [Concomitant]
  17. XANAX [Concomitant]
  18. OXYCONTIN [Concomitant]
  19. OXYNORM [Concomitant]
  20. KAYEXALATE [Concomitant]
  21. AUGMENTIN [Concomitant]
  22. TAZOCILLINE [Concomitant]
  23. FORTUM [Concomitant]
  24. VANCOMYCINE [Concomitant]
  25. FLUCONAZOLE [Concomitant]
  26. AMIKACINE [Concomitant]
  27. CYTARABINE [Concomitant]

REACTIONS (3)
  - Post procedural sepsis [Unknown]
  - Thrombocytopenia [Recovered/Resolved]
  - Agranulocytosis [Recovered/Resolved]
